FAERS Safety Report 11313602 (Version 2)
Quarter: 2016Q1

REPORT INFORMATION
  Report Type: Spontaneous
  Country: US (occurrence: US)
  Receive Date: 20150727
  Receipt Date: 20160218
  Transmission Date: 20160525
  Serious: No
  Sender: FDA-Public Use
  Company Number: US-PFIZER INC-2015222994

PATIENT
  Age: 54 Year
  Sex: Female

DRUGS (18)
  1. PHENTERMINE. [Concomitant]
     Active Substance: PHENTERMINE
     Dosage: 37.5 MG, 1X/DAY, (BEFORE BREAKFAST FOR 30 DAYS)
     Route: 048
     Dates: start: 20150804
  2. FLUTICASONE [Concomitant]
     Active Substance: FLUTICASONE\FLUTICASONE PROPIONATE
     Dosage: SPRAY 2 SPRAYS (100 MCG) IN EACH NOSTRIL BY INTRANASAL ROUTE ONCE DAILY AS NEEDED
     Route: 045
     Dates: start: 20150616
  3. OMEPRAZOLE. [Concomitant]
     Active Substance: OMEPRAZOLE
     Dosage: 20 MG, 2X/DAY (FOR 30 DAYS)
     Route: 048
     Dates: start: 20150928
  4. AMLODIPINE BENAZEPRIL [Concomitant]
     Active Substance: AMLODIPINE BESYLATE\BENAZEPRIL HYDROCHLORIDE
     Dosage: 1 DF, 1X/DAY [AMLODIPINE BESILATE 10 MG, BENAZEPRIL HYDROCHLORIDE 20 MG]
     Route: 048
     Dates: start: 20150831
  5. BENZONATATE. [Concomitant]
     Active Substance: BENZONATATE
     Dosage: 200 MG, AS NEEDED (3 TIMES PER DAY FOR 21 DAYS)
     Route: 048
     Dates: start: 20151223
  6. CYCLOBENZAPRINE [Concomitant]
     Active Substance: CYCLOBENZAPRINE
     Dosage: 10 MG, 3X/DAY (FOR 30 DAYS)
     Route: 048
     Dates: start: 20151029
  7. OXYCONTIN [Concomitant]
     Active Substance: OXYCODONE HYDROCHLORIDE
     Dosage: 15 MG, 2X/DAY (FOR 30 DAYS)
     Route: 048
     Dates: start: 20151223
  8. FUROSEMIDE. [Concomitant]
     Active Substance: FUROSEMIDE
     Dosage: 40 MG, 3X/DAY (FOR 30 DAYS)
     Route: 048
     Dates: start: 20150227
  9. MECLIZINE [Concomitant]
     Active Substance: MECLIZINE HYDROCHLORIDE
     Dosage: 25 MG, 1X/DAY (FOR 30 DAYS)
     Route: 048
     Dates: start: 20150227
  10. ROPINIROLE. [Concomitant]
     Active Substance: ROPINIROLE
     Dosage: 2 MG, 1X/DAY (1-3 HOURS BEFORE BEDTIME FOR 30 DAYS)
     Route: 048
     Dates: start: 20150831
  11. XANAX [Concomitant]
     Active Substance: ALPRAZOLAM
     Dosage: 2 MG, 4X/DAY
     Route: 048
     Dates: start: 20150730
  12. PROMETHAZINE [Concomitant]
     Active Substance: PROMETHAZINE\PROMETHAZINE HYDROCHLORIDE
     Dosage: 25 MG, AS NEEDED (DAILY)
     Route: 048
     Dates: start: 20150928
  13. GLIMEPIRIDE. [Concomitant]
     Active Substance: GLIMEPIRIDE
     Dosage: 2 MG, 2X/DAY (BEFORE MEAL)
     Route: 048
     Dates: start: 20150928
  14. HYDROCODONE BITARTRATE AND ACETAMINOPHEN [Concomitant]
     Active Substance: ACETAMINOPHEN\HYDROCODONE BITARTRATE
     Dosage: 2 DF, AS NEEDED (HYDROCODONE 10 MG/ PARACETAMOL 325 MG, EVERY 4 HOURS)
     Route: 048
     Dates: start: 20160111
  15. VENLAFAXINE [Concomitant]
     Active Substance: VENLAFAXINE HYDROCHLORIDE
     Dosage: 150 MG, 2X/DAY
     Route: 048
     Dates: start: 20150316
  16. METFORMIN [Concomitant]
     Active Substance: METFORMIN HYDROCHLORIDE
     Dosage: 1000 MG, 2X/DAY, (WITH MORNING AND EVENING MEALS FOR 30 DAYS)
     Route: 048
     Dates: start: 20150227
  17. LYRICA [Suspect]
     Active Substance: PREGABALIN
     Dosage: 200 MG, 3X/DAY
     Route: 048
     Dates: start: 20151030
  18. DICLOFENAC SODIUM. [Concomitant]
     Active Substance: DICLOFENAC SODIUM
     Dosage: UNK
     Route: 048

REACTIONS (2)
  - Pain [Unknown]
  - Gait disturbance [Unknown]
